FAERS Safety Report 5361133-9 (Version None)
Quarter: 2007Q2

REPORT INFORMATION
  Report Type: 
  Country: None (occurrence: None)
  Receive Date: 20070530
  Receipt Date: 20070117
  Transmission Date: 20071010
  Serious: No
  Sender: FDA-Public Use
  Company Number: 2006PV026958

PATIENT
  Age: 47 Year
  Sex: Female

DRUGS (10)
  1. BYETTA [Suspect]
     Indication: DIABETES MELLITUS NON-INSULIN-DEPENDENT
     Dosage: SEE IMAGE
     Route: 058
     Dates: start: 20060901, end: 20061001
  2. BYETTA [Suspect]
     Indication: WEIGHT CONTROL
     Dosage: SEE IMAGE
     Route: 058
     Dates: start: 20060901, end: 20061001
  3. BYETTA [Suspect]
     Indication: DIABETES MELLITUS NON-INSULIN-DEPENDENT
     Dosage: SEE IMAGE
     Route: 058
     Dates: start: 20061001, end: 20061001
  4. BYETTA [Suspect]
     Indication: WEIGHT CONTROL
     Dosage: SEE IMAGE
     Route: 058
     Dates: start: 20061001, end: 20061001
  5. BYETTA [Suspect]
     Indication: DIABETES MELLITUS NON-INSULIN-DEPENDENT
     Dosage: SEE IMAGE
     Route: 058
     Dates: start: 20061001
  6. BYETTA [Suspect]
     Indication: WEIGHT CONTROL
     Dosage: SEE IMAGE
     Route: 058
     Dates: start: 20061001
  7. BYETTA [Suspect]
  8. STARLIX [Concomitant]
  9. METFORMIN HCL [Concomitant]
  10. AVANDIA [Concomitant]

REACTIONS (7)
  - DECREASED APPETITE [None]
  - INJECTION SITE BRUISING [None]
  - INJECTION SITE IRRITATION [None]
  - INSOMNIA [None]
  - MIGRAINE [None]
  - STOMACH DISCOMFORT [None]
  - WEIGHT DECREASED [None]
